FAERS Safety Report 7502716-7 (Version None)
Quarter: 2011Q2

REPORT INFORMATION
  Report Type: 
  Country: None (occurrence: None)
  Receive Date: 20110525
  Receipt Date: 20110513
  Transmission Date: 20111010
  Serious: Yes (Hospitalization, Other)
  Sender: FDA-Public Use
  Company Number: PHHY2010DE84976

PATIENT
  Sex: Male
  Weight: 88 kg

DRUGS (14)
  1. SPIRIVA [Concomitant]
  2. OMEPRAZOLE [Concomitant]
  3. MCP [Concomitant]
  4. ACTRAPID [Concomitant]
  5. BISOPROLOL FUMARATE [Concomitant]
  6. ALLOPURINOL [Concomitant]
  7. TAMSULOSIN HCL [Concomitant]
  8. ASPIRIN [Concomitant]
  9. ZOMETA [Suspect]
     Indication: METASTASES TO BONE
     Dosage: 4 MG FOR EVERY 3-4 WEEKS
     Route: 042
     Dates: start: 20080916, end: 20101022
  10. DIGITOXIN TAB [Concomitant]
  11. RAMIPRIL [Concomitant]
  12. VIANI [Concomitant]
  13. TRAMADOL HCL [Concomitant]
  14. PROTAPANE [Concomitant]

REACTIONS (4)
  - PAIN [None]
  - OSTEONECROSIS OF JAW [None]
  - LOCAL SWELLING [None]
  - ERYTHEMA [None]
